FAERS Safety Report 5267507-9 (Version None)
Quarter: 2007Q1

REPORT INFORMATION
  Report Type: 
  Country: None (occurrence: None)
  Receive Date: 20061213
  Receipt Date: 20031028
  Transmission Date: 20070707
  Serious: No
  Sender: FDA-Public Use
  Company Number: 2003UW14034

PATIENT
  Age: 47 Year
  Sex: Female
  Weight: 71.2147 kg

DRUGS (2)
  1. NOLVADEX [Suspect]
     Indication: BREAST CANCER
     Dates: start: 20030901
  2. NOLVADEX [Suspect]
     Indication: BREAST CANCER
     Dosage: 5 MG ONCE PO
     Route: 048
     Dates: start: 20031021, end: 20031021

REACTIONS (4)
  - ERYTHEMA [None]
  - NAUSEA [None]
  - SKIN DISCOMFORT [None]
  - URTICARIA [None]
